FAERS Safety Report 24172946 (Version 2)
Quarter: 2024Q3

REPORT INFORMATION
  Report Type: Spontaneous
  Country: AU (occurrence: AU)
  Receive Date: 20240805
  Receipt Date: 20240830
  Transmission Date: 20241016
  Serious: Yes (Life-Threatening, Other)
  Sender: ASCEND
  Company Number: AU-Ascend Therapeutics US, LLC-2160012

PATIENT
  Age: 52 Year
  Sex: Female

DRUGS (10)
  1. ESTROGEL [Suspect]
     Active Substance: ESTRADIOL
     Indication: Hormone replacement therapy
     Route: 062
     Dates: start: 202207, end: 202308
  2. ESTROGEL [Suspect]
     Active Substance: ESTRADIOL
     Route: 062
     Dates: start: 202207, end: 202308
  3. Ca/Mg/Vit D3 [Concomitant]
     Route: 065
  4. GLUCOSAMINE [Concomitant]
     Active Substance: GLUCOSAMINE
     Route: 065
  5. LEVOTHYROXINE [Concomitant]
     Active Substance: LEVOTHYROXINE\LEVOTHYROXINE SODIUM
     Route: 065
  6. ATORVASTATIN [Concomitant]
     Active Substance: ATORVASTATIN
     Route: 048
  7. FISH OIL [Concomitant]
     Active Substance: FISH OIL
     Route: 065
  8. PROMETRIUM [Suspect]
     Active Substance: PROGESTERONE
     Route: 048
     Dates: start: 202102, end: 202406
  9. ESTROGEL [Suspect]
     Active Substance: ESTRADIOL
     Route: 062
     Dates: start: 202311, end: 202406
  10. ESTROGEL [Suspect]
     Active Substance: ESTRADIOL
     Route: 062
     Dates: start: 202308, end: 202311

REACTIONS (3)
  - Deep vein thrombosis [Unknown]
  - Peripheral swelling [Unknown]
  - Wrong technique in product usage process [Unknown]

NARRATIVE: CASE EVENT DATE: 20230801
